FAERS Safety Report 10333807 (Version 1)
Quarter: 2014Q3

REPORT INFORMATION
  Report Type: Spontaneous
  Country: US (occurrence: US)
  Receive Date: 20140723
  Receipt Date: 20140723
  Transmission Date: 20150326
  Serious: No
  Sender: FDA-Public Use
  Company Number: US-UNITED THERAPEUTICS-UTC-046213

PATIENT
  Age: 54 Year
  Sex: Female
  Weight: 86.18 kg

DRUGS (2)
  1. REMODULIN [Suspect]
     Active Substance: TREPROSTINIL
     Dosage: 0.030 UG/KG/MIN
     Route: 041
     Dates: start: 20121214
  2. REVATIO [Concomitant]
     Active Substance: SILDENAFIL CITRATE

REACTIONS (5)
  - Cold sweat [Unknown]
  - Malaise [Unknown]
  - Drug dose omission [Recovered/Resolved]
  - Device malfunction [Recovered/Resolved]
  - Dyspnoea exertional [Unknown]

NARRATIVE: CASE EVENT DATE: 20140314
